FAERS Safety Report 19446360 (Version 1)
Quarter: 2021Q2

REPORT INFORMATION
  Report Type: Spontaneous
  Country: CA (occurrence: CA)
  Receive Date: 20210622
  Receipt Date: 20210622
  Transmission Date: 20210717
  Serious: Yes (Hospitalization, Other)
  Sender: FDA-Public Use
  Company Number: CA-AUROBINDO-AUR-APL-2021-026190

PATIENT
  Age: 77 Year
  Sex: Male

DRUGS (1)
  1. ESCITALOPRAM [Suspect]
     Active Substance: ESCITALOPRAM OXALATE
     Indication: PRODUCT USED FOR UNKNOWN INDICATION
     Dosage: UNK
     Route: 048

REACTIONS (6)
  - Inappropriate antidiuretic hormone secretion [Unknown]
  - Poor quality sleep [Unknown]
  - Coordination abnormal [Unknown]
  - Anxiety [Unknown]
  - Balance disorder [Unknown]
  - Gait disturbance [Unknown]
